FAERS Safety Report 20197571 (Version 1)
Quarter: 2021Q4

REPORT INFORMATION
  Report Type: Spontaneous
  Country: PL (occurrence: PL)
  Receive Date: 20211217
  Receipt Date: 20211217
  Transmission Date: 20220303
  Serious: Yes (Other)
  Sender: FDA-Public Use
  Company Number: PL-AMGEN-POLSP2021197835

PATIENT
  Age: 56 Year
  Sex: Female

DRUGS (7)
  1. VECTIBIX [Suspect]
     Active Substance: PANITUMUMAB
     Indication: Colon cancer metastatic
     Dosage: 6 MILLIGRAM/KILOGRAM,1-HOUR INFUSION, DAY 1
     Route: 042
     Dates: start: 20210730
  2. OXALIPLATIN [Concomitant]
     Active Substance: OXALIPLATIN
     Indication: Colon cancer metastatic
     Dosage: 85 MILLIGRAM/SQ. METER, Q2WK,2-HOUR INFUSION, DAY 1
     Route: 042
     Dates: start: 20210730
  3. LEUCOVORIN [Concomitant]
     Active Substance: LEUCOVORIN
     Indication: Colon cancer metastatic
     Dosage: 100 MILLIGRAM/SQ. METER 2-HOUR INFUSION, DAYS 1-2
     Route: 042
     Dates: start: 20210730
  4. FLUOROURACIL SODIUM [Concomitant]
     Active Substance: FLUOROURACIL SODIUM
     Indication: Colon cancer metastatic
     Dosage: 400MILLIGRAM/SQ. METER,DAYS 1-2
     Route: 040
     Dates: start: 20210730
  5. FLUOROURACIL SODIUM [Concomitant]
     Active Substance: FLUOROURACIL SODIUM
     Dosage: 600 MILLIGRAM/SQ. METER, Q2WK22-HOUR INFUSION, DAYS 1-2
     Route: 042
     Dates: start: 20210730
  6. FILGRASTIM [Concomitant]
     Active Substance: FILGRASTIM
     Indication: Prophylaxis
     Route: 065
  7. PEGFILGRASTIM [Concomitant]
     Active Substance: PEGFILGRASTIM
     Indication: Prophylaxis
     Route: 065

REACTIONS (4)
  - Hepatotoxicity [Unknown]
  - Dermatitis acneiform [Unknown]
  - Skin disorder [Unknown]
  - Rash [Unknown]

NARRATIVE: CASE EVENT DATE: 20210101
